FAERS Safety Report 11292672 (Version 1)
Quarter: 2015Q2

REPORT INFORMATION
  Report Type: Spontaneous
  Country: US (occurrence: None)
  Receive Date: 20150623
  Receipt Date: 20150623
  Transmission Date: 20150821
  Serious: Yes (Other)
  Sender: FDA-Public Use
  Company Number: RB-74085--2015

PATIENT
  Age: 34 Year
  Sex: Female
  Weight: 48.94 kg

DRUGS (7)
  1. DEXTROMETHORPHAN/GUAIFENESIN 1200 MG (RB RECKITT BENCKISER)) [Suspect]
     Active Substance: DEXTROMETHORPHAN\GUAIFENESIN
     Indication: RESPIRATORY TRACT CONGESTION
     Dates: start: 20150221
  2. CALCIUM MAGNESIUM [Concomitant]
     Active Substance: CALCIUM\MAGNESIUM
  3. ORAL CONTRACEPTIVE NOS [Concomitant]
     Active Substance: UNSPECIFIED INGREDIENT
  4. ACIDUM FOLICUM [Concomitant]
     Active Substance: FOLIC ACID
  5. FISH OIL [Concomitant]
     Active Substance: FISH OIL
  6. VITAMIN D [Concomitant]
     Active Substance: CHOLECALCIFEROL
  7. NORA BE [Concomitant]
     Active Substance: NORETHINDRONE

REACTIONS (16)
  - Dyspnoea [None]
  - Dry mouth [None]
  - Asthenia [None]
  - Hypersensitivity [None]
  - Anxiety [None]
  - Abasia [None]
  - Insomnia [None]
  - Swollen tongue [None]
  - Tremor [None]
  - Feeling abnormal [None]
  - Dysphagia [None]
  - Paraesthesia [None]
  - Fatigue [None]
  - Dizziness [None]
  - Hypoaesthesia [None]
  - Disorientation [None]

NARRATIVE: CASE EVENT DATE: 20150221
